FAERS Safety Report 18889048 (Version 3)
Quarter: 2022Q1

REPORT INFORMATION
  Report Type: Spontaneous
  Country: US (occurrence: None)
  Receive Date: 20210212
  Receipt Date: 20220209
  Transmission Date: 20220424
  Serious: No
  Sender: FDA-Public Use
  Company Number: US-ROCHE-2676217

PATIENT
  Age: 67 Year
  Sex: Female

DRUGS (7)
  1. ROZLYTREK [Suspect]
     Active Substance: ENTRECTINIB
     Indication: Lung neoplasm malignant
     Dosage: FREQUENCY : DAILY
     Route: 048
     Dates: start: 20200901
  2. ROZLYTREK [Suspect]
     Active Substance: ENTRECTINIB
     Indication: Non-small cell lung cancer
     Route: 048
     Dates: start: 202008
  3. ROZLYTREK [Suspect]
     Active Substance: ENTRECTINIB
     Dosage: FREQUENCY : DAILY
     Route: 048
     Dates: start: 202010
  4. ROZLYTREK [Suspect]
     Active Substance: ENTRECTINIB
     Dosage: FREQUENCY : DAILY
     Route: 048
     Dates: start: 20201015
  5. ROZLYTREK [Suspect]
     Active Substance: ENTRECTINIB
     Dosage: FREQUENCY : DAILY
     Route: 048
     Dates: start: 202009
  6. ROZLYTREK [Suspect]
     Active Substance: ENTRECTINIB
     Dosage: FREQUENCY: DAILY (2 CAPSULES)
     Route: 048
     Dates: start: 202008
  7. ROZLYTREK [Suspect]
     Active Substance: ENTRECTINIB
     Route: 048
     Dates: start: 201910

REACTIONS (11)
  - Dizziness [Not Recovered/Not Resolved]
  - Taste disorder [Not Recovered/Not Resolved]
  - Memory impairment [Not Recovered/Not Resolved]
  - Constipation [Unknown]
  - Hypoaesthesia [Unknown]
  - Spinal disorder [Unknown]
  - Cough [Unknown]
  - Ageusia [Unknown]
  - Musculoskeletal stiffness [Unknown]
  - Rash [Unknown]
  - Neuropathy peripheral [Unknown]

NARRATIVE: CASE EVENT DATE: 20200908
